FAERS Safety Report 9352611 (Version 1)
Quarter: 2013Q2

REPORT INFORMATION
  Report Type: Spontaneous
  Country: US (occurrence: US)
  Receive Date: 20130618
  Receipt Date: 20130618
  Transmission Date: 20140414
  Serious: No
  Sender: FDA-Public Use
  Company Number: US-B.I. PHARMACEUTICALS,INC./RIDGEFIELD-2013-BI-16763BP

PATIENT
  Age: 66 Year
  Sex: Female

DRUGS (4)
  1. MELOXICAM [Suspect]
     Indication: OSTEOARTHRITIS
  2. MELOXICAM [Suspect]
     Indication: RHEUMATOID ARTHRITIS
  3. MELOXICAM [Suspect]
     Indication: TENDONITIS
  4. MELOXICAM [Suspect]
     Indication: BURSITIS

REACTIONS (1)
  - Therapeutic response decreased [Unknown]
